FAERS Safety Report 8618250-7 (Version None)
Quarter: 2012Q3

REPORT INFORMATION
  Report Type: 
  Country: None (occurrence: None)
  Receive Date: 20120824
  Receipt Date: 20120808
  Transmission Date: 20120928
  Serious: Yes (Other)
  Sender: FDA-Public Use
  Company Number: JP-MERCK-1208JPN004785

PATIENT

DRUGS (17)
  1. PEG-INTRON [Suspect]
     Indication: HEPATITIS C
     Dosage: 1.5 MICROGRAM PER KILOGRAM, QW
     Route: 058
     Dates: start: 20120611, end: 20120706
  2. GASMOTIN [Concomitant]
     Indication: PROPHYLAXIS
     Dosage: 5 MG, QD
     Route: 048
     Dates: start: 20120713
  3. ALLEGRA [Concomitant]
     Dosage: 120 MG, QD
     Route: 048
     Dates: start: 20120614, end: 20120619
  4. NIZATIDINE [Concomitant]
     Indication: PROPHYLAXIS
     Dosage: 150 MG PER DAY , PRN
     Route: 048
     Dates: start: 20120614, end: 20120626
  5. MILTAX PAP [Concomitant]
     Dosage: UNK, PRN
     Route: 061
     Dates: start: 20120615, end: 20120620
  6. LEXAPRO [Concomitant]
     Dosage: 10 MG, QD
     Route: 048
     Dates: start: 20120713, end: 20120719
  7. ALLOPURINOL [Concomitant]
     Dosage: 100 MG,QD
     Route: 048
     Dates: start: 20120618, end: 20120712
  8. TELAVIC [Suspect]
     Indication: HEPATITIS C
     Dosage: 2250 MG, QD
     Route: 048
     Dates: start: 20120611, end: 20120712
  9. MUCOSTA [Concomitant]
     Indication: PROPHYLAXIS
     Dosage: 100 MG PER DAY, PRN
     Route: 048
     Dates: start: 20120627, end: 20120701
  10. URSO 250 [Concomitant]
     Indication: HEPATITIS C
     Dosage: 600 MG, QD
     Route: 048
     Dates: start: 20120507, end: 20120625
  11. ALLOPURINOL [Concomitant]
     Dosage: 200 MG, QD
     Route: 048
     Dates: start: 20120614, end: 20120617
  12. MEILAX [Concomitant]
     Dosage: 1 MG, QD
     Route: 048
     Dates: start: 20120713
  13. REBETOL [Suspect]
     Indication: HEPATITIS C
     Dosage: 800 MG, QD
     Route: 048
     Dates: start: 20120611, end: 20120712
  14. LOXONIN [Concomitant]
     Dosage: 60 MG PER DAY, PRN
     Route: 048
     Dates: start: 20120614, end: 20120701
  15. RINDERON V [Concomitant]
     Dosage: PRN
     Route: 061
     Dates: start: 20120627, end: 20120705
  16. MYSER (CYCLOSERINE) [Concomitant]
     Dosage: QS
     Route: 061
     Dates: start: 20120614, end: 20120626
  17. ZOLPIDEM [Concomitant]
     Dosage: 10 MG, QD
     Route: 048
     Dates: start: 20120713

REACTIONS (1)
  - DEPRESSION [None]
